FAERS Safety Report 17916975 (Version 1)
Quarter: 2020Q2

REPORT INFORMATION
  Report Type: Spontaneous
  Country: LU (occurrence: LU)
  Receive Date: 20200619
  Receipt Date: 20200619
  Transmission Date: 20200714
  Serious: Yes (Death, Other)
  Sender: FDA-Public Use
  Company Number: LU-ALNYLAM PHARMACEUTICALS, INC.-ALN-2020-000948

PATIENT
  Age: 78 Year
  Sex: Male

DRUGS (1)
  1. ONPATTRO [Suspect]
     Active Substance: PATISIRAN SODIUM
     Indication: HEREDITARY NEUROPATHIC AMYLOIDOSIS
     Route: 042

REACTIONS (4)
  - Eating disorder [Unknown]
  - Sudden death [Fatal]
  - Glomerular filtration rate decreased [Unknown]
  - Fatigue [Unknown]
